FAERS Safety Report 4716309-8 (Version None)
Quarter: 2005Q3

REPORT INFORMATION
  Report Type: 
  Country: None (occurrence: None)
  Receive Date: 20050711
  Receipt Date: 20041104
  Transmission Date: 20060218
  Serious: Yes (Hospitalization)
  Sender: FDA-Public Use
  Company Number: 385666

PATIENT
  Sex: Female

DRUGS (1)
  1. CELLCEPT [Suspect]

REACTIONS (1)
  - HYPOKALAEMIA [None]
